FAERS Safety Report 17795324 (Version 2)
Quarter: 2020Q2

REPORT INFORMATION
  Report Type: Spontaneous
  Country: IN (occurrence: IN)
  Receive Date: 20200516
  Receipt Date: 20200519
  Transmission Date: 20200714
  Serious: Yes (Other)
  Sender: FDA-Public Use
  Company Number: IN-B.I. PHARMACEUTICALS,INC./RIDGEFIELD-2020-NB-024255

PATIENT
  Age: 51 Year
  Sex: Female

DRUGS (2)
  1. BIBW 2992 [Suspect]
     Active Substance: AFATINIB
     Indication: NON-SMALL CELL LUNG CANCER
     Route: 065
     Dates: start: 201505
  2. BIBW 2992 [Suspect]
     Active Substance: AFATINIB
     Indication: NON-SMALL CELL LUNG CANCER
     Route: 065
     Dates: end: 201601

REACTIONS (9)
  - Vomiting [Unknown]
  - Decreased appetite [Unknown]
  - Headache [Unknown]
  - Skin toxicity [Unknown]
  - Weight decreased [Unknown]
  - Diarrhoea [Unknown]
  - Dry skin [Unknown]
  - Gastrointestinal pain [Unknown]
  - Malignant neoplasm progression [Unknown]

NARRATIVE: CASE EVENT DATE: 201505
